FAERS Safety Report 20487771 (Version 1)
Quarter: 2022Q1

REPORT INFORMATION
  Report Type: Report from Study
  Country: BR (occurrence: BR)
  Receive Date: 20220218
  Receipt Date: 20220218
  Transmission Date: 20220424
  Serious: Yes (Other)
  Sender: FDA-Public Use
  Company Number: BR-JNJFOC-20220229227

PATIENT
  Sex: Male

DRUGS (3)
  1. JANSSEN COVID-19 VACCINE [Suspect]
     Active Substance: AD26.COV2.S
     Indication: Product used for unknown indication
     Route: 042
  2. REMICADE [Suspect]
     Active Substance: INFLIXIMAB
     Route: 042
     Dates: start: 20220112
  3. JANSSEN COVID-19 VACCINE [Suspect]
     Active Substance: AD26.COV2.S
     Indication: Product used for unknown indication
     Route: 065

REACTIONS (3)
  - Drug-induced liver injury [Recovering/Resolving]
  - Haematochezia [Recovering/Resolving]
  - COVID-19 [Unknown]
